FAERS Safety Report 4591084-9 (Version None)
Quarter: 2005Q1

REPORT INFORMATION
  Report Type: 
  Country: None (occurrence: None)
  Receive Date: 20050225
  Receipt Date: 20041222
  Transmission Date: 20050727
  Serious: Yes (Life-Threatening, Hospitalization, Disabling, Other)
  Sender: FDA-Public Use
  Company Number: 200419776US

PATIENT
  Sex: Male

DRUGS (5)
  1. KETEK [Suspect]
     Indication: SINUSITIS
     Dosage: DOSE: 400 (2 TABLETS)
     Route: 048
     Dates: start: 20041220, end: 20041220
  2. DIOVAN [Concomitant]
     Dosage: DOSE: UNK
  3. SEREVENT [Concomitant]
     Dosage: DOSE: 1 PUFF
  4. PAXIL [Concomitant]
     Dosage: DOSE: UNK
  5. SINGULAIR [Concomitant]
     Route: 048

REACTIONS (4)
  - CONDITION AGGRAVATED [None]
  - MYASTHENIA GRAVIS [None]
  - RESPIRATORY FAILURE [None]
  - VISION BLURRED [None]
